FAERS Safety Report 18490269 (Version 1)
Quarter: 2020Q4

REPORT INFORMATION
  Report Type: Spontaneous
  Country: US (occurrence: US)
  Receive Date: 20201111
  Receipt Date: 20201111
  Transmission Date: 20210114
  Serious: Yes (Hospitalization, Other)
  Sender: FDA-Public Use
  Company Number: US-QUAGEN-2020QUALIT00016

PATIENT
  Age: 38 Year
  Sex: Female

DRUGS (14)
  1. AMITRIPTYLINE [Suspect]
     Active Substance: AMITRIPTYLINE
     Indication: PRODUCT USED FOR UNKNOWN INDICATION
     Route: 065
  2. AMLODIPINE [Suspect]
     Active Substance: AMLODIPINE BESYLATE
     Indication: PRODUCT USED FOR UNKNOWN INDICATION
     Route: 065
  3. NALOXONE [Interacting]
     Active Substance: NALOXONE
     Indication: PULSELESS ELECTRICAL ACTIVITY
     Route: 065
  4. INSULIN [Interacting]
     Active Substance: INSULIN NOS
     Indication: TOXICITY TO VARIOUS AGENTS
  5. PROMETHAZINE HYDROCHLORIDE TABLETS, 12.5 MG [Suspect]
     Active Substance: PROMETHAZINE HYDROCHLORIDE
  6. EPINEPHRINE. [Interacting]
     Active Substance: EPINEPHRINE
     Indication: PULSELESS ELECTRICAL ACTIVITY
     Route: 065
  7. MONTELUKAST [Suspect]
     Active Substance: MONTELUKAST SODIUM
     Indication: PRODUCT USED FOR UNKNOWN INDICATION
     Route: 065
  8. CHARCOAL [Interacting]
     Active Substance: ACTIVATED CHARCOAL
     Indication: HEART RATE
     Route: 065
  9. GLUCAGON. [Interacting]
     Active Substance: GLUCAGON
     Indication: PRODUCT USED FOR UNKNOWN INDICATION
     Route: 065
  10. PROMETHAZINE HYDROCHLORIDE TABLETS, 12.5 MG [Suspect]
     Active Substance: PROMETHAZINE HYDROCHLORIDE
     Indication: PRODUCT USED FOR UNKNOWN INDICATION
     Route: 065
  11. CYPROHEPTADINE. [Suspect]
     Active Substance: CYPROHEPTADINE
     Indication: PRODUCT USED FOR UNKNOWN INDICATION
     Route: 065
  12. SODIUM BICARBONATE. [Interacting]
     Active Substance: SODIUM BICARBONATE
     Indication: PULSELESS ELECTRICAL ACTIVITY
     Route: 065
  13. ATROPINE. [Interacting]
     Active Substance: ATROPINE
     Indication: BRADYCARDIA
     Route: 065
  14. CLONAZEPAM. [Suspect]
     Active Substance: CLONAZEPAM
     Indication: PRODUCT USED FOR UNKNOWN INDICATION
     Route: 065

REACTIONS (7)
  - Cardiac arrest [Unknown]
  - Overdose [None]
  - Respiratory failure [Unknown]
  - Cardiogenic shock [Unknown]
  - Shock [Unknown]
  - Intestinal ischaemia [Unknown]
  - Mental status changes [Recovered/Resolved]
